FAERS Safety Report 19452852 (Version 1)
Quarter: 2021Q2

REPORT INFORMATION
  Report Type: Spontaneous
  Country: US (occurrence: US)
  Receive Date: 20210623
  Receipt Date: 20210623
  Transmission Date: 20210717
  Serious: No
  Sender: FDA-Public Use
  Company Number: US-JNJFOC-20210627307

PATIENT
  Sex: Female

DRUGS (5)
  1. TYLENOL [Suspect]
     Active Substance: ACETAMINOPHEN
     Indication: CHILLS
     Route: 065
     Dates: start: 202103
  2. COVID?19 VACCINE [Concomitant]
     Indication: PRODUCT USED FOR UNKNOWN INDICATION
     Route: 065
     Dates: start: 20210320
  3. TYLENOL [Suspect]
     Active Substance: ACETAMINOPHEN
     Indication: INJECTION SITE SWELLING
  4. TYLENOL [Suspect]
     Active Substance: ACETAMINOPHEN
     Indication: INJECTION SITE ERYTHEMA
  5. TYLENOL [Suspect]
     Active Substance: ACETAMINOPHEN
     Indication: PARAESTHESIA

REACTIONS (1)
  - Product use in unapproved indication [Unknown]

NARRATIVE: CASE EVENT DATE: 202103
